FAERS Safety Report 4887959-3 (Version None)
Quarter: 2006Q1

REPORT INFORMATION
  Report Type: 
  Country: None (occurrence: None)
  Receive Date: 20060123
  Receipt Date: 20051005
  Transmission Date: 20060701
  Serious: Yes (Death, Hospitalization)
  Sender: FDA-Public Use
  Company Number: US-MERCK-0510USA04307

PATIENT
  Age: 75 Year
  Sex: Female
  Weight: 82 kg

DRUGS (13)
  1. VIOXX [Suspect]
     Indication: ARTHRITIS
     Route: 048
     Dates: start: 20000625, end: 20031002
  2. VERAPAMIL [Concomitant]
     Route: 065
  3. PROTONIX [Concomitant]
     Route: 065
  4. NITROGLYCERIN [Concomitant]
     Route: 065
  5. PAXIL CR [Concomitant]
     Route: 065
  6. LEVOTHYROXINE SODIUM [Concomitant]
     Route: 065
  7. HALOPERIDOL [Concomitant]
     Route: 065
  8. POTASSIUM (UNSPECIFIED) [Concomitant]
     Route: 065
  9. CEFACLOR [Concomitant]
     Route: 065
  10. ACETAMINOPHEN [Concomitant]
     Route: 065
  11. HYDROCODONE BITARTRATE + ACETAMINOPHEN [Concomitant]
     Route: 065
  12. LORAZEPAM [Concomitant]
     Route: 065
  13. PREVPAC [Concomitant]
     Route: 065

REACTIONS (3)
  - ARTHROPATHY [None]
  - FALL [None]
  - ISCHAEMIC STROKE [None]
